FAERS Safety Report 5810480-2 (Version None)
Quarter: 2008Q3

REPORT INFORMATION
  Report Type: 
  Country: None (occurrence: None)
  Receive Date: 20080715
  Receipt Date: 20080703
  Transmission Date: 20090109
  Serious: Yes (Other)
  Sender: FDA-Public Use
  Company Number: BR-PFIZER INC-2008056122

PATIENT
  Sex: Male
  Weight: 16.8 kg

DRUGS (3)
  1. PHENYTOIN SODIUM [Suspect]
     Indication: EPILEPSY
     Dosage: DAILY DOSE:5ML
     Route: 048
  2. DEPAKENE [Suspect]
     Indication: EPILEPSY
     Route: 048
     Dates: start: 20071201
  3. VALIUM [Suspect]
     Indication: AGITATION

REACTIONS (4)
  - CONVULSION [None]
  - INSOMNIA [None]
  - INTENTIONAL SELF-INJURY [None]
  - SKIN LESION [None]
